FAERS Safety Report 23574002 (Version 4)
Quarter: 2024Q2

REPORT INFORMATION
  Report Type: Spontaneous
  Country: US (occurrence: US)
  Receive Date: 20240228
  Receipt Date: 20240512
  Transmission Date: 20240716
  Serious: No
  Sender: FDA-Public Use
  Company Number: US-BRISTOL-MYERS SQUIBB COMPANY-2024-031664

PATIENT
  Age: 73 Year
  Sex: Male

DRUGS (1)
  1. REVLIMID [Suspect]
     Active Substance: LENALIDOMIDE
     Indication: Plasma cell myeloma
     Route: 048

REACTIONS (8)
  - Fatigue [Unknown]
  - Abdominal pain upper [Unknown]
  - Insomnia [Unknown]
  - Constipation [Unknown]
  - Back pain [Unknown]
  - Taste disorder [Unknown]
  - Diarrhoea [Unknown]
  - Gingival bleeding [Unknown]
